FAERS Safety Report 25597277 (Version 1)
Quarter: 2025Q3

REPORT INFORMATION
  Report Type: Spontaneous
  Country: EU (occurrence: EU)
  Receive Date: 20250723
  Receipt Date: 20250723
  Transmission Date: 20251021
  Serious: Yes (Hospitalization, Other)
  Sender: AMGEN
  Company Number: EU-AMGEN-POLSP2025139603

PATIENT
  Age: 15 Year
  Sex: Male

DRUGS (5)
  1. ROMIPLOSTIM [Suspect]
     Active Substance: ROMIPLOSTIM
     Indication: Immune thrombocytopenia
     Route: 065
  2. ROMIPLOSTIM [Suspect]
     Active Substance: ROMIPLOSTIM
     Route: 065
  3. Immunoglobulin [Concomitant]
  4. METHYLPREDNISOLONE [Concomitant]
     Active Substance: METHYLPREDNISOLONE
     Dates: start: 20231010
  5. PREDNISONE [Concomitant]
     Active Substance: PREDNISONE
     Dates: start: 20240223

REACTIONS (5)
  - Systemic lupus erythematosus [Unknown]
  - Intracranial pressure increased [Unknown]
  - Therapy partial responder [Unknown]
  - Headache [Unknown]
  - Pseudopapilloedema [Unknown]
